FAERS Safety Report 23126435 (Version 2)
Quarter: 2023Q4

REPORT INFORMATION
  Report Type: Spontaneous
  Country: UA (occurrence: UA)
  Receive Date: 20231030
  Receipt Date: 20231108
  Transmission Date: 20240110
  Serious: Yes (Hospitalization)
  Sender: FDA-Public Use
  Company Number: UA-BAUSCH-BL-2023-016131

PATIENT
  Age: 32 Year
  Sex: Female

DRUGS (3)
  1. BUDESONIDE [Suspect]
     Active Substance: BUDESONIDE
     Indication: Colitis ulcerative
     Dosage: 1 CAPSULE 1 TIME PER DAY FOR 30 DAYS
     Route: 048
     Dates: start: 202309, end: 202310
  2. PENTASA [Suspect]
     Active Substance: MESALAMINE
     Indication: Colitis ulcerative
     Dosage: 2 G X 2 PER DAY
     Route: 065
     Dates: start: 202309, end: 202310
  3. ASACOL [Suspect]
     Active Substance: MESALAMINE
     Indication: Colitis ulcerative
     Route: 054
     Dates: start: 202309, end: 202310

REACTIONS (4)
  - Colitis ulcerative [Recovered/Resolved]
  - Alopecia [Recovered/Resolved]
  - Body temperature increased [Recovered/Resolved]
  - Menstrual disorder [Recovered/Resolved]

NARRATIVE: CASE EVENT DATE: 20230901
